FAERS Safety Report 12580397 (Version 1)
Quarter: 2016Q3

REPORT INFORMATION
  Report Type: Spontaneous
  Country: US (occurrence: US)
  Receive Date: 20160721
  Receipt Date: 20160721
  Transmission Date: 20161109
  Serious: No
  Sender: FDA-Public Use
  Company Number: US-TOLMAR INC.-1055372

PATIENT
  Sex: Female

DRUGS (1)
  1. CICLOPIROX TOPICAL SOLUTION, 8% (NAIL LACQUER) [Suspect]
     Active Substance: CICLOPIROX
     Route: 061

REACTIONS (1)
  - Drug ineffective [Unknown]
